FAERS Safety Report 6490750-8 (Version None)
Quarter: 2009Q4

REPORT INFORMATION
  Report Type: 
  Country: None (occurrence: None)
  Receive Date: 20091208
  Receipt Date: 20091130
  Transmission Date: 20100525
  Serious: Yes (Other)
  Sender: FDA-Public Use
  Company Number: JPI-P-009295

PATIENT
  Age: 24 Year
  Sex: Female
  Weight: 72.1219 kg

DRUGS (11)
  1. XYREM [Suspect]
     Indication: NARCOLEPSY
     Dosage: SEE IMAGE
     Route: 048
     Dates: start: 20090101, end: 20090101
  2. XYREM [Suspect]
     Indication: NARCOLEPSY
     Dosage: SEE IMAGE
     Route: 048
     Dates: start: 20090101, end: 20090101
  3. XYREM [Suspect]
     Indication: NARCOLEPSY
     Dosage: SEE IMAGE
     Route: 048
     Dates: start: 20090801, end: 20090101
  4. XYREM [Suspect]
     Indication: NARCOLEPSY
     Dosage: SEE IMAGE
     Route: 048
     Dates: start: 20090101
  5. LEVETIRACETAM [Concomitant]
  6. THYROID MEDICATION [Concomitant]
  7. MODAFINIL [Concomitant]
  8. ATORVASTATIN CALCIUM [Concomitant]
  9. ENALAPRIL MALEATE [Concomitant]
  10. INSULIN PUMP [Concomitant]
  11. VITAMIN D [Concomitant]

REACTIONS (2)
  - HYPERGLYCAEMIA [None]
  - URINE KETONE BODY PRESENT [None]
